FAERS Safety Report 7761998-7 (Version None)
Quarter: 2011Q3

REPORT INFORMATION
  Report Type: 
  Country: None (occurrence: None)
  Receive Date: 20110920
  Receipt Date: 20110913
  Transmission Date: 20111222
  Serious: Yes (Hospitalization)
  Sender: FDA-Public Use
  Company Number: JP-BAYER-2011-053880

PATIENT
  Age: 62 Year
  Sex: Male
  Weight: 57 kg

DRUGS (10)
  1. GLAKAY [Concomitant]
     Dosage: DAILY DOSE 45 MG
     Route: 048
  2. NIZATIDINE [Concomitant]
     Dosage: DAILY DOSE 300 MG
     Route: 048
  3. LAMIVUDINE [Concomitant]
     Dosage: DAILY DOSE 100 MG
     Route: 048
  4. AMOBAN [Concomitant]
     Dosage: DAILY DOSE 5 MG
     Route: 048
     Dates: start: 20110613
  5. NEXAVAR [Suspect]
     Indication: HEPATIC NEOPLASM MALIGNANT
     Dosage: 400 MG, BID
     Route: 048
     Dates: start: 20110614, end: 20110618
  6. ALDACTONE [Concomitant]
     Dosage: DAILY DOSE 50 MG
     Route: 048
  7. ACETAMINOPHEN [Concomitant]
     Dosage: DAILY DOSE 400 MG
     Route: 048
     Dates: start: 20110615
  8. LASIX [Concomitant]
     Dosage: DAILY DOSE 20 MG
     Route: 048
  9. LOXONIN [Concomitant]
     Dosage: DAILY DOSE 60 MG
     Route: 048
     Dates: start: 20110616
  10. HEPSERA [Concomitant]
     Dosage: DAILY DOSE 10 MG
     Route: 048

REACTIONS (3)
  - INFLAMMATORY MARKER INCREASED [None]
  - PYREXIA [None]
  - LIVER DISORDER [None]
